FAERS Safety Report 9082148 (Version 1)
Quarter: 2013Q1

REPORT INFORMATION
  Report Type: Report from Study
  Country: US (occurrence: US)
  Receive Date: 20130131
  Receipt Date: 20130131
  Transmission Date: 20140127
  Serious: No
  Sender: FDA-Public Use
  Company Number: US-ABBOTT-12P-163-0989683-00

PATIENT
  Age: 57 Year
  Sex: Female
  Weight: 78.54 kg

DRUGS (5)
  1. HUMIRA [Suspect]
     Indication: PSORIATIC ARTHROPATHY
     Dates: start: 20120726
  2. HUMIRA [Suspect]
     Indication: PSORIASIS
  3. FLECTOR [Concomitant]
     Indication: PSORIATIC ARTHROPATHY
  4. NEURONTIN [Concomitant]
     Indication: PAIN
  5. ZANAFLEX [Concomitant]
     Indication: PSORIATIC ARTHROPATHY

REACTIONS (1)
  - Nasopharyngitis [Not Recovered/Not Resolved]
